FAERS Safety Report 11997675 (Version 1)
Quarter: 2016Q1

REPORT INFORMATION
  Report Type: Spontaneous
  Country: US (occurrence: US)
  Receive Date: 20160203
  Receipt Date: 20160203
  Transmission Date: 20160526
  Serious: No
  Sender: FDA-Public Use
  Company Number: US-ANACOR-2015ANA00221

PATIENT
  Age: 81 Year
  Sex: Male
  Weight: 86.17 kg

DRUGS (3)
  1. TRICOR [Concomitant]
     Active Substance: FENOFIBRATE
     Dosage: UNK
     Dates: start: 20151216, end: 20151216
  2. KERYDIN [Suspect]
     Active Substance: TAVABOROLE
     Indication: FUNGAL INFECTION
     Dosage: 1 GTT, 1X/DAY
     Route: 061
     Dates: start: 201511
  3. TRICOR [Concomitant]
     Active Substance: FENOFIBRATE
     Dosage: 125 MG, 1X/DAY

REACTIONS (3)
  - Exposure via inhalation [Recovered/Resolved]
  - Rhinalgia [Not Recovered/Not Resolved]
  - Nasal discomfort [Not Recovered/Not Resolved]

NARRATIVE: CASE EVENT DATE: 20151216
